FAERS Safety Report 24554732 (Version 1)
Quarter: 2024Q4

REPORT INFORMATION
  Report Type: Spontaneous
  Country: US (occurrence: US)
  Receive Date: 20241028
  Receipt Date: 20241028
  Transmission Date: 20250114
  Serious: Yes (Other)
  Sender: ZYDUS PHARM
  Company Number: US-CADILA HEALTHCARE LIMITED-US-ZYDUS-113911

PATIENT

DRUGS (2)
  1. APIXABAN [Suspect]
     Active Substance: APIXABAN
     Indication: Ischaemic stroke
     Dosage: UNK
     Route: 065
  2. APIXABAN [Suspect]
     Active Substance: APIXABAN
     Indication: Atrial fibrillation

REACTIONS (2)
  - Ischaemic cerebral infarction [Unknown]
  - Foix-Chavany-Marie syndrome [Unknown]
